FAERS Safety Report 16384628 (Version 1)
Quarter: 2019Q2

REPORT INFORMATION
  Report Type: Spontaneous
  Country: JP (occurrence: JP)
  Receive Date: 20190603
  Receipt Date: 20190603
  Transmission Date: 20190711
  Serious: Yes (Death, Hospitalization, Other)
  Sender: FDA-Public Use
  Company Number: JP-JNJFOC-20180513087

PATIENT
  Age: 76 Year
  Sex: Male
  Weight: 59.6 kg

DRUGS (4)
  1. XARELTO [Suspect]
     Active Substance: RIVAROXABAN
     Indication: ATRIAL FIBRILLATION
     Route: 048
     Dates: start: 20170415, end: 201712
  2. EFIENT [Interacting]
     Active Substance: PRASUGREL HYDROCHLORIDE
     Indication: ISCHAEMIC HEART DISEASE PROPHYLAXIS
     Route: 048
     Dates: start: 20170415, end: 201712
  3. BAYASPIRIN [Interacting]
     Active Substance: ASPIRIN
     Indication: ISCHAEMIC HEART DISEASE PROPHYLAXIS
     Route: 048
     Dates: end: 201712
  4. BAYASPIRIN [Interacting]
     Active Substance: ASPIRIN
     Indication: CEREBROVASCULAR ACCIDENT PROPHYLAXIS
     Route: 048
     Dates: end: 201712

REACTIONS (8)
  - Thrombosis [Unknown]
  - Depressed level of consciousness [Unknown]
  - Gastrointestinal haemorrhage [Recovered/Resolved]
  - Gastric cancer [Recovered/Resolved]
  - Pneumonia [Fatal]
  - Cerebral infarction [Fatal]
  - Transient ischaemic attack [Unknown]
  - Labelled drug-drug interaction medication error [Unknown]

NARRATIVE: CASE EVENT DATE: 20170526
